FAERS Safety Report 22976171 (Version 2)
Quarter: 2023Q4

REPORT INFORMATION
  Report Type: Report from Study
  Country: CN (occurrence: CN)
  Receive Date: 20230925
  Receipt Date: 20231004
  Transmission Date: 20240110
  Serious: Yes (Death, Other)
  Sender: FDA-Public Use
  Company Number: CN-SA-2023SA288785

PATIENT

DRUGS (1)
  1. OXALIPLATIN [Suspect]
     Active Substance: OXALIPLATIN
     Indication: Hepatocellular carcinoma
     Dosage: 100 UNK, SLOWLY INFUSED FOR MORE THAN 20 MINUTES

REACTIONS (2)
  - Liver abscess [Fatal]
  - Hepatic failure [Fatal]
